FAERS Safety Report 7907066-2 (Version None)
Quarter: 2011Q4

REPORT INFORMATION
  Report Type: 
  Country: None (occurrence: None)
  Receive Date: 20111110
  Receipt Date: 20100120
  Transmission Date: 20120403
  Serious: No
  Sender: FDA-Public Use
  Company Number: US-BAYER-201011960NA

PATIENT
  Sex: Female

DRUGS (1)
  1. CLIMARA [Suspect]
     Dosage: 100 MCG/24HR, UNK
     Route: 062
     Dates: start: 20091001

REACTIONS (4)
  - PRODUCT ADHESION ISSUE [None]
  - NAUSEA [None]
  - PRODUCT DEPOSIT [None]
  - APPLICATION SITE PRURITUS [None]
